FAERS Safety Report 8191243-2 (Version None)
Quarter: 2012Q1

REPORT INFORMATION
  Report Type: 
  Country: None (occurrence: None)
  Receive Date: 20120307
  Receipt Date: 20120227
  Transmission Date: 20120608
  Serious: Yes (Hospitalization)
  Sender: FDA-Public Use
  Company Number: BR-ASTRAZENECA-2012SE14106

PATIENT
  Age: 53 Year
  Sex: Female
  Weight: 68 kg

DRUGS (3)
  1. RIVOTRIL [Concomitant]
     Indication: DEPRESSION
     Route: 048
  2. ATACAND HCT [Suspect]
     Indication: HYPERTENSION
     Dosage: 16/12.5 MG, ONCE DAILY
     Route: 048
     Dates: start: 20110101
  3. PONDERA [Concomitant]
     Indication: DEPRESSION
     Route: 048

REACTIONS (2)
  - GASTRITIS [None]
  - CHOLELITHIASIS [None]
